FAERS Safety Report 18146592 (Version 1)
Quarter: 2020Q3

REPORT INFORMATION
  Report Type: Spontaneous
  Country: US (occurrence: US)
  Receive Date: 20200813
  Receipt Date: 20200813
  Transmission Date: 20201103
  Serious: Yes (Life-Threatening, Hospitalization, Other)
  Sender: FDA-Public Use
  Company Number: US-GLENMARK PHARMACEUTICALS-2020GMK049081

PATIENT
  Age: 42 Year
  Sex: Female

DRUGS (2)
  1. LIDOCAINE. [Concomitant]
     Active Substance: LIDOCAINE
     Indication: PAIN MANAGEMENT
     Dosage: C 6?7 + L 4?5 EPIDURAL INJECTION OF 8 MILLIGRAMS OF LIDOCAINE?BETAMETHASONE
     Route: 008
  2. BETAMETHASONE DIPROPIONATE. [Suspect]
     Active Substance: BETAMETHASONE DIPROPIONATE
     Indication: PAIN MANAGEMENT
     Dosage: C 6?7 + L 4?5 EPIDURAL INJECTION OF 8 MILLIGRAMS OF LIDOCAINE?BETAMETHASONE
     Route: 008

REACTIONS (1)
  - Familial periodic paralysis [Recovered/Resolved]
